FAERS Safety Report 23341984 (Version 1)
Quarter: 2023Q4

REPORT INFORMATION
  Report Type: Spontaneous
  Country: US (occurrence: US)
  Receive Date: 20231227
  Receipt Date: 20231227
  Transmission Date: 20240109
  Serious: No
  Sender: FDA-Public Use
  Company Number: US-SA-SAC20231218001105

PATIENT
  Age: 62 Year
  Sex: Male

DRUGS (3)
  1. DUPIXENT [Suspect]
     Active Substance: DUPILUMAB
     Indication: Sinus polyp degeneration
     Dosage: 300MG, EVERY 14 DAYS
     Route: 058
     Dates: start: 202311, end: 2023
  2. DUPIXENT [Suspect]
     Active Substance: DUPILUMAB
     Indication: Nasal congestion
  3. DUPIXENT [Suspect]
     Active Substance: DUPILUMAB
     Indication: Sinusitis

REACTIONS (1)
  - Abdominal discomfort [Unknown]

NARRATIVE: CASE EVENT DATE: 20230101
